FAERS Safety Report 8601155-5 (Version None)
Quarter: 2012Q3

REPORT INFORMATION
  Report Type: 
  Country: None (occurrence: None)
  Receive Date: 20120817
  Receipt Date: 20120814
  Transmission Date: 20120928
  Serious: Yes (Other)
  Sender: FDA-Public Use
  Company Number: PHEH2012US015941

PATIENT
  Sex: Female

DRUGS (12)
  1. TASIGNA [Suspect]
     Indication: LEUKAEMIA
     Dosage: 150 MG, QID
     Dates: start: 20120601
  2. SYNTHROID [Concomitant]
  3. MAGNESIUM [Concomitant]
     Dosage: 40 MG, BID
  4. IRON W/VITAMINS NOS [Concomitant]
  5. OCTREOTIDE ACETATE [Concomitant]
     Dosage: 3 ML, UNK
  6. CALCIUM [Concomitant]
  7. MIDODRINE HYDROCHLORIDE [Concomitant]
     Dosage: 5 MG, TID
  8. ASCORBIC ACID [Concomitant]
  9. CRESTOR [Concomitant]
     Dosage: 10 MG, UNK
  10. TOPAMAX [Concomitant]
     Dosage: 150 MG
  11. SYMBICORT [Concomitant]
  12. POTASSIUM [Concomitant]
     Dosage: 10 MEQ

REACTIONS (6)
  - FULL BLOOD COUNT INCREASED [None]
  - AUTONOMIC NERVOUS SYSTEM IMBALANCE [None]
  - JOINT DISLOCATION [None]
  - ARTHRALGIA [None]
  - VISION BLURRED [None]
  - MUSCLE SPASMS [None]
